FAERS Safety Report 17871918 (Version 1)
Quarter: 2020Q2

REPORT INFORMATION
  Report Type: Spontaneous
  Country: CA (occurrence: CA)
  Receive Date: 20200608
  Receipt Date: 20200608
  Transmission Date: 20200714
  Serious: Yes (Other)
  Sender: FDA-Public Use
  Company Number: CA-ROCHE-2615079

PATIENT
  Age: 82 Year
  Sex: Male
  Weight: 68 kg

DRUGS (10)
  1. ESBRIET [Suspect]
     Active Substance: PIRFENIDONE
     Route: 065
  2. ADVAIR HFA [Concomitant]
     Active Substance: FLUTICASONE PROPIONATE\SALMETEROL XINAFOATE
  3. IBUPROFEN. [Concomitant]
     Active Substance: IBUPROFEN
  4. LIPITOR [Concomitant]
     Active Substance: ATORVASTATIN CALCIUM
  5. ACETYLSALICYLIC ACID [Suspect]
     Active Substance: ASPIRIN
     Indication: PRODUCT USED FOR UNKNOWN INDICATION
     Route: 065
  6. ESBRIET [Suspect]
     Active Substance: PIRFENIDONE
     Route: 065
  7. DIPHENHYDRAMINE. [Suspect]
     Active Substance: DIPHENHYDRAMINE
     Indication: PRODUCT USED FOR UNKNOWN INDICATION
     Route: 065
  8. CALCIUM CARBONATE. [Concomitant]
     Active Substance: CALCIUM CARBONATE
  9. SPIRIVA [Concomitant]
     Active Substance: TIOTROPIUM BROMIDE MONOHYDRATE
  10. ESBRIET [Suspect]
     Active Substance: PIRFENIDONE
     Indication: IDIOPATHIC PULMONARY FIBROSIS
     Route: 065

REACTIONS (14)
  - Dizziness [Unknown]
  - Dysgeusia [Unknown]
  - Limb discomfort [Unknown]
  - Somnolence [Unknown]
  - Back pain [Unknown]
  - Decreased appetite [Unknown]
  - Gait disturbance [Unknown]
  - Abdominal pain [Unknown]
  - Photosensitivity reaction [Unknown]
  - Therapeutic response decreased [Unknown]
  - Abdominal pain upper [Unknown]
  - Dyspnoea [Unknown]
  - Epistaxis [Unknown]
  - Heart rate increased [Unknown]
